FAERS Safety Report 21220106 (Version 1)
Quarter: 2022Q3

REPORT INFORMATION
  Report Type: Spontaneous
  Country: CA (occurrence: CA)
  Receive Date: 20220817
  Receipt Date: 20220817
  Transmission Date: 20221027
  Serious: Yes (Life-Threatening, Hospitalization)
  Sender: FDA-Public Use
  Company Number: None

PATIENT
  Age: 81 Year
  Sex: Male

DRUGS (21)
  1. DOCETAXEL [Suspect]
     Active Substance: DOCETAXEL
     Indication: Product used for unknown indication
  2. ALENDRONAT [Concomitant]
     Active Substance: ALENDRONATE SODIUM
  3. BERBERINE [Concomitant]
     Active Substance: BERBERINE
  4. BISACODYL [Concomitant]
     Active Substance: BISACODYL
  5. CALCIUM\MAGNESIUM [Concomitant]
     Active Substance: CALCIUM\MAGNESIUM
  6. CARVEDILOL [Concomitant]
     Active Substance: CARVEDILOL
  7. COENZYME Q10 [Concomitant]
     Active Substance: DIETARY SUPPLEMENT\UBIDECARENONE
  8. DIGOXIN [Concomitant]
     Active Substance: DIGOXIN
  9. DUTASTERIDE [Concomitant]
     Active Substance: DUTASTERIDE
  10. FUROSEMIDE [Concomitant]
     Active Substance: FUROSEMIDE
  11. HYDROMORPHONE [Concomitant]
     Active Substance: HYDROMORPHONE
  12. IRON [Concomitant]
     Active Substance: IRON
  13. JANUVIA [Concomitant]
     Active Substance: SITAGLIPTIN PHOSPHATE
  14. METFORMIN [Concomitant]
     Active Substance: METFORMIN HYDROCHLORIDE
  15. RIVAROXABAN [Concomitant]
     Active Substance: RIVAROXABAN
  16. ROSUVASTATIN [Concomitant]
     Active Substance: ROSUVASTATIN
  17. SENNA [Concomitant]
     Active Substance: SENNA LEAF\SENNOSIDES\SENNOSIDES A AND B
  18. SPIRONOLACTONE [Concomitant]
     Active Substance: SPIRONOLACTONE
  19. TAMSULOSIN [Concomitant]
     Active Substance: TAMSULOSIN
  20. VITAMIN C [Concomitant]
     Active Substance: ASCORBIC ACID
  21. VITAMIN D [Concomitant]
     Active Substance: VITAMIN D NOS

REACTIONS (1)
  - Escherichia sepsis [Recovered/Resolved]
